FAERS Safety Report 7959664-8 (Version None)
Quarter: 2011Q4

REPORT INFORMATION
  Report Type: 
  Country: None (occurrence: None)
  Receive Date: 20111201
  Receipt Date: 20111115
  Transmission Date: 20120403
  Serious: Yes (Death)
  Sender: FDA-Public Use
  Company Number: 2009-009

PATIENT
  Age: 50 Year
  Sex: Male

DRUGS (1)
  1. FAZACLO ODT [Suspect]
     Dosage: 500 MG, QD, ORAL
     Route: 048
     Dates: start: 20051118, end: 20081220

REACTIONS (4)
  - LOWER RESPIRATORY TRACT INFECTION [None]
  - HEPATIC CONGESTION [None]
  - CHRONIC OBSTRUCTIVE PULMONARY DISEASE [None]
  - PULMONARY OEDEMA [None]
